FAERS Safety Report 5086382-9 (Version None)
Quarter: 2006Q3

REPORT INFORMATION
  Report Type: 
  Country: None (occurrence: None)
  Receive Date: 20060703
  Receipt Date: 20060316
  Transmission Date: 20061208
  Serious: No
  Sender: FDA-Public Use
  Company Number: 2006S1002318

PATIENT
  Age: 24 Year
  Sex: Male

DRUGS (5)
  1. CLOZAPINE [Suspect]
     Indication: SCHIZOPHRENIA, PARANOID TYPE
     Dosage: 500 MG;HS;ORAL
     Route: 048
  2. LANSOPRAZOLE [Concomitant]
  3. FLUOXETINE HCL [Concomitant]
  4. QUETIAPINE [Concomitant]
  5. HALOPERIDOL [Concomitant]

REACTIONS (1)
  - GRANULOCYTOPENIA [None]
